FAERS Safety Report 17423809 (Version 1)
Quarter: 2020Q1

REPORT INFORMATION
  Report Type: Spontaneous
  Country: US (occurrence: US)
  Receive Date: 20200217
  Receipt Date: 20200217
  Transmission Date: 20200409
  Serious: No
  Sender: FDA-Public Use
  Company Number: US-AMGEN-USASP2020024593

PATIENT
  Age: 61 Year
  Sex: Male

DRUGS (3)
  1. ENBREL [Suspect]
     Active Substance: ETANERCEPT
     Indication: PITYRIASIS RUBRA PILARIS
     Dosage: UNK
     Route: 065
  2. ISOTRETINOIN. [Concomitant]
     Active Substance: ISOTRETINOIN
     Indication: SKIN DISCOMFORT
  3. ISOTRETINOIN. [Concomitant]
     Active Substance: ISOTRETINOIN
     Indication: PITYRIASIS RUBRA PILARIS
     Dosage: 10 MG, 1X/DAY
     Route: 048
     Dates: start: 20170202

REACTIONS (1)
  - Drug ineffective [Unknown]
